FAERS Safety Report 8399637-7 (Version None)
Quarter: 2012Q2

REPORT INFORMATION
  Report Type: 
  Country: None (occurrence: None)
  Receive Date: 20120531
  Receipt Date: 20120526
  Transmission Date: 20120825
  Serious: Yes (Disabling, Other)
  Sender: FDA-Public Use
  Company Number: US-PFIZER INC-2012117931

PATIENT
  Sex: Female
  Weight: 102.95 kg

DRUGS (11)
  1. NORTRIPTYLINE [Concomitant]
     Dosage: UNK
  2. EFFEXOR [Suspect]
     Indication: DEPRESSION
     Dosage: UNK
  3. ZOLOFT [Suspect]
     Indication: DEPRESSION
     Dosage: 100 MG, 1X/DAY
     Route: 048
     Dates: start: 20020101
  4. SKELAXIN [Concomitant]
     Dosage: 800 MG
  5. EFFEXOR XR [Suspect]
     Dosage: 225 MG, 1X/DAY
     Route: 048
  6. EFFEXOR XR [Suspect]
     Indication: DEPRESSION
     Dosage: 75 MG, 1X/DAY
     Route: 048
     Dates: start: 20040101
  7. XANAX [Suspect]
     Dosage: 1 MG, 1X/DAY
     Route: 048
  8. XANAX [Suspect]
     Dosage: UNK
     Route: 048
  9. XANAX [Suspect]
     Dosage: 2 MG, 1X/DAY
     Route: 048
  10. EFFEXOR XR [Suspect]
     Dosage: 150 MG, 1X/DAY
     Route: 048
  11. XANAX [Suspect]
     Indication: DEPRESSION
     Dosage: 0.5 MG, 1X/DAY
     Route: 048

REACTIONS (12)
  - MUSCLE SPASMS [None]
  - CARDIAC DISORDER [None]
  - ASTHMA [None]
  - DEPRESSED MOOD [None]
  - OEDEMA [None]
  - OEDEMA PERIPHERAL [None]
  - NECK INJURY [None]
  - SURGERY [None]
  - JOINT INJURY [None]
  - PAIN [None]
  - DYSSTASIA [None]
  - DRUG INEFFECTIVE [None]
